FAERS Safety Report 12933472 (Version 1)
Quarter: 2016Q4

REPORT INFORMATION
  Report Type: Report from Study
  Country: US (occurrence: US)
  Receive Date: 20161111
  Receipt Date: 20161111
  Transmission Date: 20170207
  Serious: Yes (Other)
  Sender: FDA-Public Use
  Company Number: US-MALLINCKRODT-T201605320

PATIENT
  Age: 21 Year
  Sex: Female

DRUGS (2)
  1. REPOSITORY CORTICOTROPIN INJECTION [Suspect]
     Active Substance: CORTICOTROPIN
     Indication: SYMPATHETIC OPHTHALMIA
     Dosage: 80 UNITS TWICE WEEKLY
     Route: 058
     Dates: start: 20160630
  2. REPOSITORY CORTICOTROPIN INJECTION [Suspect]
     Active Substance: CORTICOTROPIN
     Indication: JUVENILE IDIOPATHIC ARTHRITIS
     Dosage: 50 UNITS TWICE WEEKLY (MONDAYS AND THURSDAYS)
     Route: 058
     Dates: start: 20160630

REACTIONS (3)
  - Cataract [Recovering/Resolving]
  - Nail infection [Not Recovered/Not Resolved]
  - Cataract operation complication [Not Recovered/Not Resolved]

NARRATIVE: CASE EVENT DATE: 2016
